FAERS Safety Report 25981051 (Version 1)
Quarter: 2025Q4

REPORT INFORMATION
  Report Type: Spontaneous
  Country: US (occurrence: US)
  Receive Date: 20251030
  Receipt Date: 20251030
  Transmission Date: 20260118
  Serious: No
  Sender: ASTELLAS
  Company Number: US-ASTELLAS-2025-AER-058851

PATIENT
  Sex: Female

DRUGS (2)
  1. VEOZAH [Interacting]
     Active Substance: FEZOLINETANT
     Indication: Product used for unknown indication
     Route: 065
  2. ESTROGENS [Interacting]
     Active Substance: ESTROGENS
     Indication: Product used for unknown indication
     Route: 065

REACTIONS (1)
  - Contraindicated product administered [Unknown]
